FAERS Safety Report 7197726-6 (Version None)
Quarter: 2010Q4

REPORT INFORMATION
  Report Type: 
  Country: None (occurrence: None)
  Receive Date: 20101208
  Receipt Date: 20101125
  Transmission Date: 20110411
  Serious: Yes (Death, Hospitalization)
  Sender: FDA-Public Use
  Company Number: 2010JP005314

PATIENT
  Age: 61 Year
  Sex: Male
  Weight: 65 kg

DRUGS (13)
  1. ALOXI [Suspect]
     Indication: PROPHYLAXIS OF NAUSEA AND VOMITING
     Dosage: 0.75 MG, QD, INTRAVENOUS
     Route: 042
     Dates: start: 20101104, end: 20101104
  2. TS 1 (GIMERACIL, OTERACIL POTASSIUM, TEGAFUR) [Suspect]
     Indication: GASTRIC CANCER
     Dosage: 120 MG, QD, ORAL
     Route: 048
     Dates: start: 20101021, end: 20101111
  3. CISPLATIN [Suspect]
     Indication: GASTRIC CANCER
     Dosage: 60 MG/M2, QD, IV DRIP
     Route: 041
     Dates: start: 20101104, end: 20101104
  4. MAGLAX (MAGNESIUM OXIDE) [Concomitant]
  5. LOXONIN (LOXOPROFEN SODIUM) [Concomitant]
  6. OXYCONTIN [Concomitant]
  7. OXINORM OXINORM (ORGOTEIN) [Concomitant]
  8. NOVAMIN (PROCHLORPERAZINE) [Concomitant]
  9. VEEN-F (CALCIUM CHLORIDE ANHYDROUS, MAGNESIUM CHLORIDE ANHYDROUS, POTA [Concomitant]
  10. LASIX [Concomitant]
  11. DEXART (DEXAMETHASONE SODIUM PHOSPHATE) [Concomitant]
  12. EMEND [Concomitant]
  13. DECADRON (DEXAMETHASONE TEBUTATE) [Concomitant]

REACTIONS (4)
  - BLOOD POTASSIUM INCREASED [None]
  - CARDIO-RESPIRATORY ARREST [None]
  - MYOCARDIAL ISCHAEMIA [None]
  - THERAPEUTIC RESPONSE DECREASED [None]
